FAERS Safety Report 20296270 (Version 1)
Quarter: 2022Q1

REPORT INFORMATION
  Report Type: Spontaneous
  Country: DE (occurrence: DE)
  Receive Date: 20220105
  Receipt Date: 20220105
  Transmission Date: 20220424
  Serious: Yes (Congenital Anomaly, Other)
  Sender: FDA-Public Use
  Company Number: DE-EMBRYOTOX-202007396

PATIENT
  Age: 5 Week
  Sex: Male
  Weight: 4.43 kg

DRUGS (6)
  1. NEBIVOLOL [Suspect]
     Active Substance: NEBIVOLOL
     Indication: Hypertension
     Dosage: 5 MILLIGRAM, ONCE A DAY (5 [MG/D (1-0-0) ]/ OR UNTIL GW 8. NOT CLEAR.)
     Route: 064
     Dates: start: 20200603, end: 20200705
  2. METOPROLOL [Suspect]
     Active Substance: METOPROLOL
     Indication: Hypertension
     Dosage: 47.5 MILLIGRAM, ONCE A DAY (47.5 [MG/D (BIS 28.75) ]/ OR FROM GW 8 UNTIL DELIVERY)
     Route: 064
  3. CLOMIPHENE [Concomitant]
     Active Substance: CLOMIPHENE
     Indication: Assisted fertilisation
     Dosage: UNK
     Route: 064
  4. PROGESTERONE [Concomitant]
     Active Substance: PROGESTERONE
     Indication: Assisted fertilisation
     Dosage: 400 MILLIGRAM, ONCE A DAY (400 [MG/D (200-0-200) ]
     Route: 064
  5. LEVOTHYROXINE SODIUM [Concomitant]
     Active Substance: LEVOTHYROXINE SODIUM
     Indication: Hypothyroidism
     Dosage: 50 MICROGRAM, ONCE A DAY (50 [?G/D (BIS 25) ]
     Route: 064
     Dates: start: 20200603, end: 20210113
  6. METHYLDOPA [Concomitant]
     Active Substance: METHYLDOPA
     Indication: Hypertension
     Dosage: 500 MILLIGRAM, ONCE A DAY (500 [MG/D (2X250) ]
     Route: 064

REACTIONS (2)
  - Congenital hydronephrosis [Unknown]
  - Foetal exposure during pregnancy [Unknown]
